FAERS Safety Report 7269927-X (Version None)
Quarter: 2011Q1

REPORT INFORMATION
  Report Type: 
  Country: None (occurrence: None)
  Receive Date: 20110125
  Receipt Date: 20110125
  Transmission Date: 20110831
  Serious: No
  Sender: FDA-Public Use
  Company Number: None

PATIENT
  Age: 79 Year
  Sex: Male
  Weight: 63.5036 kg

DRUGS (1)
  1. THALOMID [Suspect]

REACTIONS (3)
  - FATIGUE [None]
  - ALOPECIA [None]
  - CONSTIPATION [None]
